FAERS Safety Report 24899362 (Version 2)
Quarter: 2025Q1

REPORT INFORMATION
  Report Type: Spontaneous
  Country: MX (occurrence: MX)
  Receive Date: 20250129
  Receipt Date: 20250310
  Transmission Date: 20250408
  Serious: Yes (Hospitalization, Other)
  Sender: UCB
  Company Number: MX-UCBSA-2025004766

PATIENT

DRUGS (1)
  1. LEVETIRACETAM [Suspect]
     Active Substance: LEVETIRACETAM
     Indication: Epilepsy

REACTIONS (4)
  - Status epilepticus [Unknown]
  - Mechanical ventilation [Unknown]
  - Adverse drug reaction [Unknown]
  - Drug ineffective [Unknown]
